FAERS Safety Report 5378870-2 (Version None)
Quarter: 2007Q3

REPORT INFORMATION
  Report Type: 
  Country: None (occurrence: None)
  Receive Date: 20070705
  Receipt Date: 20070626
  Transmission Date: 20080115
  Serious: Yes (Hospitalization)
  Sender: FDA-Public Use
  Company Number: JP-SANOFI-SYNTHELABO-F01200700435

PATIENT
  Sex: Male
  Weight: 66 kg

DRUGS (4)
  1. ALEVIATIN [Concomitant]
     Dosage: 200 MG
     Route: 048
     Dates: start: 20040101
  2. MAGMITT [Concomitant]
     Dosage: 1800 MG
     Route: 048
     Dates: start: 20061226
  3. GASTER D [Concomitant]
     Dosage: 20 MG
     Route: 048
     Dates: start: 20061226
  4. CLOPIDOGREL [Suspect]
     Indication: CEREBROVASCULAR DISORDER
     Dosage: 75 MG
     Route: 048
     Dates: start: 20061226, end: 20070111

REACTIONS (2)
  - GENERALISED ERYTHEMA [None]
  - HEPATIC FUNCTION ABNORMAL [None]
